FAERS Safety Report 7157381-8 (Version None)
Quarter: 2010Q4

REPORT INFORMATION
  Report Type: 
  Country: None (occurrence: None)
  Receive Date: 20101214
  Receipt Date: 20101130
  Transmission Date: 20110411
  Serious: Yes (Hospitalization, Disabling)
  Sender: FDA-Public Use
  Company Number: PHHY2010JP05882

PATIENT
  Sex: Male

DRUGS (11)
  1. TASIGNA [Suspect]
     Indication: CHRONIC MYELOID LEUKAEMIA
     Dosage: 400 MG DAILY
     Route: 048
     Dates: start: 20090525, end: 20090809
  2. TASIGNA [Suspect]
     Dosage: 600 MG DAILY
     Route: 048
     Dates: start: 20090810, end: 20091025
  3. TASIGNA [Suspect]
     Dosage: 800 MG DAILY
     Route: 048
     Dates: start: 20091026, end: 20091107
  4. TASIGNA [Suspect]
     Dosage: 400 MG DAILY
     Route: 048
     Dates: start: 20091110
  5. WARFARIN SODIUM [Suspect]
     Dosage: 1.5 MG, UNK
     Route: 048
  6. WARFARIN SODIUM [Suspect]
     Dosage: 2 MG DAILY
     Dates: start: 20090915
  7. NORVASC [Concomitant]
     Dosage: 7.5 MG, UNK
     Route: 048
  8. NU-LOTAN [Concomitant]
     Dosage: 2.5 MG, UNK
     Route: 048
  9. LASIX [Concomitant]
     Dosage: 10 MG, UNK
     Route: 048
  10. ZYLORIC [Concomitant]
     Dosage: 1 DF, UNK
     Route: 048
  11. BEZATOL - SLOW RELEASE [Concomitant]
     Dosage: 400 MG, UNK
     Route: 048

REACTIONS (9)
  - DYSCHEZIA [None]
  - GASTROINTESTINAL HAEMORRHAGE [None]
  - HYPOPHOSPHATAEMIA [None]
  - HYPOTHYROIDISM [None]
  - MALAISE [None]
  - MUSCLE SPASMS [None]
  - OEDEMA PERIPHERAL [None]
  - PAIN IN EXTREMITY [None]
  - PROTHROMBIN TIME RATIO INCREASED [None]
